FAERS Safety Report 10285500 (Version 2)
Quarter: 2014Q3

REPORT INFORMATION
  Report Type: Spontaneous
  Country: SI (occurrence: SI)
  Receive Date: 20140709
  Receipt Date: 20140714
  Transmission Date: 20150326
  Serious: Yes (Other)
  Sender: FDA-Public Use
  Company Number: SI-ROCHE-1431263

PATIENT
  Age: 36 Year
  Sex: Female

DRUGS (1)
  1. XOLAIR [Suspect]
     Active Substance: OMALIZUMAB
     Indication: ASTHMA
     Dosage: FOR 6 MONTHS
     Route: 058
     Dates: start: 201211

REACTIONS (3)
  - Abortion spontaneous [Recovered/Resolved]
  - Asthma [Unknown]
  - Exposure during pregnancy [Unknown]
